FAERS Safety Report 5670925-8 (Version None)
Quarter: 2008Q1

REPORT INFORMATION
  Report Type: 
  Country: None (occurrence: None)
  Receive Date: 20080318
  Receipt Date: 20080307
  Transmission Date: 20080703
  Serious: Yes (Hospitalization)
  Sender: FDA-Public Use
  Company Number: B0512434A

PATIENT
  Age: 57 Year
  Sex: Female

DRUGS (5)
  1. ARIXTRA [Suspect]
     Indication: PULMONARY EMBOLISM
     Dosage: 7.5MG PER DAY
     Route: 058
     Dates: start: 20070702, end: 20071207
  2. DEPAKOTE [Concomitant]
  3. LEPTICUR [Concomitant]
  4. RISPERDAL [Concomitant]
  5. URBANYL [Concomitant]

REACTIONS (4)
  - FALL [None]
  - HAEMATOMA [None]
  - INCORRECT DRUG ADMINISTRATION DURATION [None]
  - RED BLOOD CELL COUNT DECREASED [None]
